FAERS Safety Report 11448639 (Version 1)
Quarter: 2015Q3

REPORT INFORMATION
  Report Type: Report from Study
  Country: NL (occurrence: NL)
  Receive Date: 20150902
  Receipt Date: 20150902
  Transmission Date: 20151125
  Serious: Yes (Other)
  Sender: FDA-Public Use
  Company Number: NL-AMGEN-NLDSL2015087638

PATIENT
  Age: 53 Year
  Sex: Female

DRUGS (12)
  1. OMEPRAZOLE                         /00661202/ [Concomitant]
     Dosage: 20 MG, 2 CAPSULE , PER DAY
     Route: 048
     Dates: start: 20150305, end: 20150602
  2. SENNOSIDE A+B [Concomitant]
     Active Substance: SENNOSIDES A AND B
     Dosage: 2 MG/ML, QD,15ML PER DAY
     Dates: start: 20150428, end: 20150805
  3. OXYCODON [Concomitant]
     Active Substance: OXYCODONE
     Dosage: 10 MG, QD
     Route: 048
     Dates: start: 20150430, end: 20150801
  4. VOLTAREN [Concomitant]
     Active Substance: DICLOFENAC SODIUM
     Dosage: 25 MG/ML, UNK
     Dates: start: 20150713
  5. MUPIROCINE [Concomitant]
     Dosage: 20 MG/G, QD
     Route: 061
     Dates: start: 20150723
  6. XGEVA [Suspect]
     Active Substance: DENOSUMAB
     Indication: BREAST CANCER
     Dosage: 120 MG, Q4WK
     Route: 058
     Dates: start: 20140307
  7. DICLOFENAC W/MISOPROSTOL [Concomitant]
     Active Substance: DICLOFENAC SODIUM\MISOPROSTOL
     Dosage: 75 MG/200MCG, 1TABLET PER DAY
     Route: 048
     Dates: start: 20150713, end: 20150811
  8. ASPIRIN. [Concomitant]
     Active Substance: ASPIRIN
     Dosage: 80 MG, QD
     Route: 048
     Dates: start: 20150507, end: 20150705
  9. CHLOORHEXIDINE DIGLUCONAAT [Concomitant]
     Dosage: 40 MG/ML, QD
     Dates: start: 20150723
  10. ADRENALINE HCL [Concomitant]
     Dosage: 1 MG/ML, QD
     Dates: start: 20141009
  11. METOCLOPRAMIDE HCL CF [Concomitant]
     Dosage: 10 MG, QD
     Route: 048
     Dates: start: 20150410, end: 20150708
  12. CALCIUM + D3                       /00944201/ [Concomitant]
     Active Substance: CALCIUM\CHOLECALCIFEROL
     Dosage: 500 MG, 1 SACHET,PER DAY
     Route: 048
     Dates: start: 20150528

REACTIONS (6)
  - VIth nerve paresis [Unknown]
  - Mobility decreased [Unknown]
  - Arthralgia [Unknown]
  - Diplopia [Unknown]
  - Humerus fracture [Unknown]
  - Condition aggravated [Not Recovered/Not Resolved]

NARRATIVE: CASE EVENT DATE: 20141126
